FAERS Safety Report 24659499 (Version 1)
Quarter: 2024Q4

REPORT INFORMATION
  Report Type: Spontaneous
  Country: US (occurrence: US)
  Receive Date: 20241125
  Receipt Date: 20241125
  Transmission Date: 20250115
  Serious: Yes (Hospitalization)
  Sender: PRIMUS PHARMACEUTICALS
  Company Number: US-PRIMUS-2024-US-062617

PATIENT
  Age: 42 Year
  Sex: Female

DRUGS (9)
  1. SERNIVO [Suspect]
     Active Substance: BETAMETHASONE DIPROPIONATE
     Indication: Product used for unknown indication
     Dosage: APPLY TOPICALLY EVERY NIGHT AT BEDTIME TO SCALP
     Route: 061
     Dates: start: 20240918
  2. METFORMIN [Concomitant]
     Active Substance: METFORMIN HYDROCHLORIDE
  3. IBUPROFEN [Concomitant]
     Active Substance: IBUPROFEN
  4. ATORVASTATIN [Concomitant]
     Active Substance: ATORVASTATIN
  5. COSENTYX [Concomitant]
     Active Substance: SECUKINUMAB
  6. LISINOPRIL [Concomitant]
     Active Substance: LISINOPRIL
  7. TROSPIUM [Concomitant]
     Active Substance: TROSPIUM
  8. TRIAMCINOLONE ACETONIDE [Concomitant]
     Active Substance: TRIAMCINOLONE ACETONIDE
  9. BENZONATATE [Concomitant]
     Active Substance: BENZONATATE

REACTIONS (2)
  - Hospitalisation [Unknown]
  - Off label use [Not Recovered/Not Resolved]
